FAERS Safety Report 5618991-X (Version None)
Quarter: 2008Q1

REPORT INFORMATION
  Report Type: 
  Country: None (occurrence: None)
  Receive Date: 20080207
  Receipt Date: 20080206
  Transmission Date: 20080703
  Serious: Yes (Other)
  Sender: FDA-Public Use
  Company Number: IT-BOEHRINGER INGELHEIM GMBH, GERMANY-2008-DE-00747GD

PATIENT
  Age: 41 Year
  Sex: Female

DRUGS (7)
  1. MORPHINE [Suspect]
     Indication: POSTOPERATIVE ANALGESIA
     Route: 008
  2. SUFENTANIL CITRATE [Suspect]
     Indication: SPINAL ANAESTHESIA
  3. BUPIVACAINE [Concomitant]
     Indication: SPINAL ANAESTHESIA
     Dosage: 5 MG 0.5%
  4. LIDOCAINE AND EPINEPHRINE [Concomitant]
     Indication: EPIDURAL ANAESTHESIA
     Dosage: 9 ML 2.0% LIDOCAINE WITH 1:200000 EPINEPHRINE
     Route: 008
  5. SODIUM BICARBONATE [Concomitant]
     Indication: EPIDURAL ANAESTHESIA
     Route: 008
  6. LEVOBUPIVACAINE [Concomitant]
     Indication: POSTOPERATIVE ANALGESIA
     Dosage: 10 ML OF 0.125%
     Route: 008
  7. PARACETAMOL [Concomitant]
     Indication: PAIN
     Route: 042

REACTIONS (8)
  - ASTHENIA [None]
  - FEELING HOT [None]
  - HYPERHIDROSIS [None]
  - HYPOTHERMIA [None]
  - NAUSEA [None]
  - SEDATION [None]
  - TREMOR [None]
  - VOMITING [None]
